FAERS Safety Report 20095196 (Version 1)
Quarter: 2021Q4

REPORT INFORMATION
  Report Type: Spontaneous
  Country: NL (occurrence: US)
  Receive Date: 20211122
  Receipt Date: 20211122
  Transmission Date: 20220303
  Serious: No
  Sender: FDA-Public Use
  Company Number: NL-DENTSPLY PHARMACEUTICAL-2021SCDP000258

PATIENT

DRUGS (1)
  1. PRILOCAINE [Suspect]
     Active Substance: PRILOCAINE
     Indication: Product used for unknown indication
     Dosage: UNK

REACTIONS (2)
  - Foetal exposure during delivery [Unknown]
  - Methaemoglobinaemia [Recovered/Resolved]
